FAERS Safety Report 12306278 (Version 7)
Quarter: 2019Q2

REPORT INFORMATION
  Report Type: Report from Study
  Country: TW (occurrence: TW)
  Receive Date: 20160426
  Receipt Date: 20190403
  Transmission Date: 20190711
  Serious: Yes (Hospitalization)
  Sender: FDA-Public Use
  Company Number: PHHY2016TW049992

PATIENT
  Age: 89 Year
  Sex: Female
  Weight: 59.6 kg

DRUGS (165)
  1. ISOSORBIDE DINITRATE. [Concomitant]
     Active Substance: ISOSORBIDE DINITRATE
     Dosage: 5 MG, UNK
     Route: 048
     Dates: start: 20171012, end: 20171012
  2. LACIDIPINE [Concomitant]
     Active Substance: LACIDIPINE
     Indication: HYPERTENSION
     Dosage: 4 MG, UNK }3 MONTHS BEFORE VISIT 1
     Route: 048
  3. BENZONATATE. [Concomitant]
     Active Substance: BENZONATATE
     Indication: PRODUCT USED FOR UNKNOWN INDICATION
     Dosage: 1 DF, TID
     Route: 048
  4. AMLODIPINE BESYLATE. [Concomitant]
     Active Substance: AMLODIPINE BESYLATE
     Dosage: 5 MG, UNK
     Route: 048
     Dates: start: 20171113, end: 20171117
  5. BISACODYL. [Concomitant]
     Active Substance: BISACODYL
     Dosage: 20 MG, UNK
     Route: 054
     Dates: start: 20171106, end: 20171106
  6. CAPTOPRIL. [Concomitant]
     Active Substance: CAPTOPRIL
     Dosage: 25 MG, UNK
     Route: 048
     Dates: start: 20171203, end: 20171209
  7. EXFORGE HCT [Concomitant]
     Active Substance: AMLODIPINE BESYLATE\HYDROCHLOROTHIAZIDE\VALSARTAN
     Dosage: 12 MG, UNK
     Route: 048
     Dates: start: 20171209, end: 20171209
  8. FUROSEMIDE. [Concomitant]
     Active Substance: FUROSEMIDE
     Indication: HYPERTENSION
     Dosage: 20 MG, UNK
     Route: 041
     Dates: start: 20171015, end: 20171015
  9. FUROSEMIDE. [Concomitant]
     Active Substance: FUROSEMIDE
     Dosage: 20 MG, UNK
     Route: 048
     Dates: start: 20171108, end: 20171113
  10. GLUCOSE [Concomitant]
     Active Substance: DEXTROSE
     Dosage: 40 ML, (GLUCOSE 50%)
     Route: 041
     Dates: start: 20171106, end: 20171106
  11. GLUCOSE [Concomitant]
     Active Substance: DEXTROSE
     Dosage: 40 ML, (GLUCOSE 50%)
     Route: 041
     Dates: start: 20171122, end: 20171122
  12. HEPARIN [Concomitant]
     Active Substance: HEPARIN SODIUM
     Indication: PROPHYLAXIS
     Dosage: 5 ML, UNK
     Route: 041
     Dates: start: 20171020, end: 20171020
  13. INSULIN DETEMIR [Concomitant]
     Active Substance: INSULIN DETEMIR
     Dosage: 4 U, UNK
     Route: 058
     Dates: start: 20171019, end: 20171020
  14. INSULIN DETEMIR [Concomitant]
     Active Substance: INSULIN DETEMIR
     Dosage: 10 U, UNK
     Route: 058
     Dates: start: 20171020, end: 20171020
  15. INSULIN DETEMIR [Concomitant]
     Active Substance: INSULIN DETEMIR
     Dosage: 14 U, UNK
     Route: 058
     Dates: start: 20171023, end: 20171024
  16. INSULIN DETEMIR [Concomitant]
     Active Substance: INSULIN DETEMIR
     Dosage: 14 U, UNK
     Route: 058
     Dates: start: 20171024, end: 20171025
  17. ISOPHANE HUMAN INSULIN [Concomitant]
     Active Substance: INSULIN HUMAN
     Dosage: 12 U, UNK
     Route: 058
     Dates: start: 20171026, end: 20171031
  18. ISOSORBIDE-5-MONONITRATE [Concomitant]
     Active Substance: ISOSORBIDE MONONITRATE
     Dosage: 20 MG, UNK
     Route: 048
     Dates: start: 20171117, end: 20171123
  19. INSULIN [Concomitant]
     Active Substance: INSULIN NOS
     Dosage: 13 U, (5 +8)
     Route: 058
     Dates: start: 20171021, end: 20171021
  20. INSULIN [Concomitant]
     Active Substance: INSULIN NOS
     Dosage: 5 U, UNK
     Route: 058
     Dates: start: 20171025, end: 20171025
  21. SENNOSIDE [Concomitant]
     Active Substance: SENNOSIDES
     Dosage: 40 MG, UNK
     Route: 048
     Dates: start: 20171211, end: 20171211
  22. SODIUM CHLORIDE. [Concomitant]
     Active Substance: SODIUM CHLORIDE
     Indication: PRODUCT USED FOR UNKNOWN INDICATION
     Dosage: 750 ML, (500+200)
     Route: 041
     Dates: start: 20171016, end: 20171016
  23. WARFARIN [Concomitant]
     Active Substance: WARFARIN
     Indication: PROPHYLAXIS
     Dosage: 2.5 MG, UNK }3 MONTHS BEFORE VISIT 1
     Route: 048
  24. AMLODIPINE BESYLATE. [Concomitant]
     Active Substance: AMLODIPINE BESYLATE
     Dosage: 5 MG, UNK
     Route: 048
     Dates: start: 20171117, end: 20171123
  25. COMBIVENT [Concomitant]
     Active Substance: ALBUTEROL SULFATE\IPRATROPIUM BROMIDE
     Dosage: 2.5 ML, UNK
     Route: 055
     Dates: start: 20171015, end: 20171016
  26. ESTAZOLAM. [Concomitant]
     Active Substance: ESTAZOLAM
     Indication: INSOMNIA
     Dosage: 2 MG, UNK
     Route: 048
     Dates: start: 20171030, end: 20171106
  27. ESTAZOLAM. [Concomitant]
     Active Substance: ESTAZOLAM
     Dosage: 2 MG, UNK
     Route: 048
     Dates: start: 20171205, end: 20171206
  28. EXFORGE HCT [Concomitant]
     Active Substance: AMLODIPINE BESYLATE\HYDROCHLOROTHIAZIDE\VALSARTAN
     Indication: HYPERTENSION
     Dosage: 12 MG, UNK
     Route: 048
     Dates: start: 20171017, end: 20171018
  29. INSULIN DETEMIR [Concomitant]
     Active Substance: INSULIN DETEMIR
     Dosage: 5 U, UNK
     Route: 058
     Dates: start: 20171020, end: 20171021
  30. INSULIN DETEMIR [Concomitant]
     Active Substance: INSULIN DETEMIR
     Dosage: 7 U, UNK
     Route: 058
     Dates: start: 20171021, end: 20171021
  31. ISOSORBIDE-5-MONONITRATE [Concomitant]
     Active Substance: ISOSORBIDE MONONITRATE
     Indication: ARRHYTHMIA
     Dosage: 20 MG, UNK
     Route: 048
     Dates: start: 20171109, end: 20171113
  32. ISOSORBIDE-5-MONONITRATE [Concomitant]
     Active Substance: ISOSORBIDE MONONITRATE
     Dosage: 20 MG, UNK
     Route: 048
     Dates: start: 20171205, end: 20171211
  33. METFORMIN [Concomitant]
     Active Substance: METFORMIN HYDROCHLORIDE
     Dosage: 500 MG, UNK
     Route: 048
     Dates: start: 20171206, end: 20171211
  34. NICARDIPINE [Concomitant]
     Active Substance: NICARDIPINE
     Dosage: 10 MG, UNK
     Route: 041
     Dates: start: 20171013, end: 20171013
  35. NICARDIPINE [Concomitant]
     Active Substance: NICARDIPINE
     Dosage: 1 MG,  (10 MG/ 1ML/ AMP)
     Route: 041
     Dates: start: 20171015, end: 20171015
  36. NICORANDIL [Concomitant]
     Active Substance: NICORANDIL
     Dosage: 5 MG, UNK
     Route: 048
     Dates: start: 20171030, end: 20171106
  37. NICORANDIL [Concomitant]
     Active Substance: NICORANDIL
     Dosage: 5 MG, UNK
     Route: 048
     Dates: start: 20171117, end: 20171123
  38. INSULIN [Concomitant]
     Active Substance: INSULIN NOS
     Indication: TYPE 2 DIABETES MELLITUS
     Dosage: 7 U, (100 IU/ ML 10 ML/ VIAL)
     Route: 041
     Dates: start: 20171011, end: 20171112
  39. INSULIN [Concomitant]
     Active Substance: INSULIN NOS
     Dosage: 3 U, (100 IU)
     Route: 058
     Dates: start: 20171015, end: 20171015
  40. SENNOSIDE [Concomitant]
     Active Substance: SENNOSIDES
     Dosage: 40 MG, UNK
     Route: 048
     Dates: start: 20171102, end: 20171108
  41. SENNOSIDE [Concomitant]
     Active Substance: SENNOSIDES
     Dosage: 40 MG, UNK
     Route: 048
     Dates: start: 20171113, end: 20171117
  42. SODIUM CHLORIDE. [Concomitant]
     Active Substance: SODIUM CHLORIDE
     Dosage: 500 ML, UNK
     Route: 041
     Dates: start: 20171123, end: 20171125
  43. TRAZODONE [Concomitant]
     Active Substance: TRAZODONE HYDROCHLORIDE
     Dosage: 50 MG, UNK
     Route: 048
     Dates: start: 20171117, end: 20171123
  44. TASIGNA [Suspect]
     Active Substance: NILOTINIB
     Dosage: 300 MG, QD
     Route: 048
     Dates: start: 20160309, end: 20160321
  45. TASIGNA [Suspect]
     Active Substance: NILOTINIB
     Dosage: 600 MG, QD
     Route: 048
     Dates: start: 20160322, end: 20160501
  46. TASIGNA [Suspect]
     Active Substance: NILOTINIB
     Dosage: 450 MG, QD
     Route: 048
     Dates: start: 20160502, end: 20160628
  47. PROPRANOLOL [Concomitant]
     Active Substance: PROPRANOLOL HYDROCHLORIDE
     Indication: ARRHYTHMIA
     Dosage: 5 MG, UNK }3 MONTHS BEFORE VISIT 1
     Route: 048
  48. ACETYLCYSTEINE. [Concomitant]
     Active Substance: ACETYLCYSTEINE
     Indication: PRODUCT USED FOR UNKNOWN INDICATION
     Dosage: 1 DF, QD
     Route: 048
  49. BISACODYL. [Concomitant]
     Active Substance: BISACODYL
     Dosage: 20 MG, UNK
     Route: 054
     Dates: start: 20171116, end: 20171116
  50. BISACODYL. [Concomitant]
     Active Substance: BISACODYL
     Dosage: 20 MG, UNK
     Route: 054
     Dates: start: 20171204, end: 20171204
  51. CAPTOPRIL. [Concomitant]
     Active Substance: CAPTOPRIL
     Indication: ARRHYTHMIA
     Dosage: 25 MG, UNK
     Route: 048
     Dates: start: 20171028, end: 20171028
  52. CAPTOPRIL. [Concomitant]
     Active Substance: CAPTOPRIL
     Dosage: 25 MG, UNK
     Route: 048
     Dates: start: 20171111, end: 20171113
  53. ESTAZOLAM. [Concomitant]
     Active Substance: ESTAZOLAM
     Dosage: 2 MG, UNK
     Route: 048
     Dates: start: 20171106, end: 20171112
  54. FUROSEMIDE. [Concomitant]
     Active Substance: FUROSEMIDE
     Dosage: 20 MG, UNK
     Route: 048
     Dates: start: 20171117, end: 20171123
  55. GLUCOSE [Concomitant]
     Active Substance: DEXTROSE
     Indication: TYPE 2 DIABETES MELLITUS
     Dosage: 1500 ML,  (5 %IN NORMAL SALINE) (1000+ 500)
     Route: 041
     Dates: start: 20171016, end: 20171016
  56. IOHEXOL [Concomitant]
     Active Substance: IOHEXOL
     Indication: PROPHYLAXIS
     Dosage: 525 MG, UNK
     Route: 041
     Dates: start: 20171016, end: 20171016
  57. ISOSORBIDE-5-MONONITRATE [Concomitant]
     Active Substance: ISOSORBIDE MONONITRATE
     Dosage: 20 MG, UNK
     Route: 048
     Dates: start: 20171113, end: 20171117
  58. NICORANDIL [Concomitant]
     Active Substance: NICORANDIL
     Indication: HYPERTENSION
     Dosage: 5 MG, UNK
     Route: 048
     Dates: start: 20171018, end: 20171024
  59. NICORANDIL [Concomitant]
     Active Substance: NICORANDIL
     Dosage: 5 MG, UNK
     Route: 048
     Dates: start: 20171024, end: 20171030
  60. NICORANDIL [Concomitant]
     Active Substance: NICORANDIL
     Dosage: 5 MG, UNK
     Route: 048
     Dates: start: 20171129, end: 20171205
  61. NICORANDIL [Concomitant]
     Active Substance: NICORANDIL
     Dosage: 5 MG, UNK
     Route: 048
     Dates: start: 20171205, end: 20171211
  62. INSULIN [Concomitant]
     Active Substance: INSULIN NOS
     Dosage: 18 U, (10+8) (100 UI)
     Route: 058
     Dates: start: 20171013, end: 20171013
  63. SENNOSIDE [Concomitant]
     Active Substance: SENNOSIDES
     Dosage: 40 MG, UNK
     Route: 048
     Dates: start: 20171108, end: 20171113
  64. SENNOSIDE [Concomitant]
     Active Substance: SENNOSIDES
     Dosage: 40 MG, UNK
     Route: 048
     Dates: start: 20171123, end: 20171129
  65. SODIUM CHLORIDE. [Concomitant]
     Active Substance: SODIUM CHLORIDE
     Dosage: 500 ML, UNK
     Route: 041
     Dates: start: 20171029, end: 20171104
  66. TRIAMCINOLONE [Concomitant]
     Active Substance: TRIAMCINOLONE
     Indication: PROPHYLAXIS
     Dosage: 6 G, UNK
     Route: 065
     Dates: start: 20171031, end: 20171031
  67. TRICHLORMETHIAZIDE [Concomitant]
     Active Substance: TRICHLORMETHIAZIDE
     Indication: HYPERTENSION
     Dosage: 2 MG, UNK
     Route: 048
     Dates: start: 20171012, end: 20171012
  68. TASIGNA [Suspect]
     Active Substance: NILOTINIB
     Dosage: 600 MG, QD
     Route: 048
     Dates: start: 20160629, end: 20171211
  69. DOXAZOSIN [Concomitant]
     Active Substance: DOXAZOSIN\DOXAZOSIN MESYLATE
     Indication: HYPERTENSION
     Dosage: 4 MG, UNK }3 MONTHS BEFORE VISIT 1
     Route: 048
  70. VALSARTAN. [Concomitant]
     Active Substance: VALSARTAN
     Indication: HYPERTENSION
     Dosage: 160 MG, UNK }3 MONTHS BEFORE VISIT 1
     Route: 048
  71. BISACODYL. [Concomitant]
     Active Substance: BISACODYL
     Dosage: 20 MG, UNK
     Route: 054
     Dates: start: 20171126, end: 20171126
  72. BISACODYL. [Concomitant]
     Active Substance: BISACODYL
     Dosage: 20 MG, UNK
     Route: 054
     Dates: start: 20171130, end: 20171130
  73. BISACODYL. [Concomitant]
     Active Substance: BISACODYL
     Dosage: 20 MG, UNK
     Route: 054
     Dates: start: 20171209, end: 20171209
  74. CAPTOPRIL. [Concomitant]
     Active Substance: CAPTOPRIL
     Dosage: 25 MG, UNK
     Route: 048
     Dates: start: 20171211, end: 20171211
  75. ESTAZOLAM. [Concomitant]
     Active Substance: ESTAZOLAM
     Dosage: 2 MG, UNK
     Route: 048
     Dates: start: 20171117, end: 20171123
  76. INSULIN DETEMIR [Concomitant]
     Active Substance: INSULIN DETEMIR
     Indication: TYPE 2 DIABETES MELLITUS
     Dosage: 5 U, UNK
     Route: 058
     Dates: start: 20171019, end: 20171019
  77. INSULIN DETEMIR [Concomitant]
     Active Substance: INSULIN DETEMIR
     Dosage: 14 U, UNK
     Route: 058
     Dates: start: 20171023, end: 20171023
  78. ISOPHANE HUMAN INSULIN [Concomitant]
     Active Substance: INSULIN HUMAN
     Indication: TYPE 2 DIABETES MELLITUS
     Dosage: 8 U, UNK
     Route: 058
     Dates: start: 20171025, end: 20171026
  79. ISOSORBIDE-5-MONONITRATE [Concomitant]
     Active Substance: ISOSORBIDE MONONITRATE
     Dosage: 20 MG, UNK
     Route: 048
     Dates: start: 20171123, end: 20171129
  80. ISOSORBIDE-5-MONONITRATE [Concomitant]
     Active Substance: ISOSORBIDE MONONITRATE
     Dosage: 20 MG, UNK
     Route: 048
     Dates: start: 20171211, end: 20171211
  81. NICARDIPINE [Concomitant]
     Active Substance: NICARDIPINE
     Indication: HYPERTENSION
     Dosage: 10 MG, UNK
     Route: 041
     Dates: start: 20171012, end: 20171012
  82. INSULIN [Concomitant]
     Active Substance: INSULIN NOS
     Dosage: 4 U,  (100 IU/ML)
     Route: 058
     Dates: start: 20171012, end: 20171012
  83. INSULIN [Concomitant]
     Active Substance: INSULIN NOS
     Dosage: 5 U, (100 IU)
     Route: 041
     Dates: start: 20171016, end: 20171019
  84. SENNOSIDE [Concomitant]
     Active Substance: SENNOSIDES
     Dosage: 40 MG, UNK
     Route: 048
     Dates: start: 20171021, end: 20171027
  85. SENNOSIDE [Concomitant]
     Active Substance: SENNOSIDES
     Dosage: 40 MG, UNK
     Route: 048
     Dates: start: 20171205, end: 20171211
  86. SODIUM CHLORIDE. [Concomitant]
     Active Substance: SODIUM CHLORIDE
     Dosage: 500 ML, UNK
     Route: 041
     Dates: start: 20171117, end: 20171117
  87. ALPRAZOLAM. [Concomitant]
     Active Substance: ALPRAZOLAM
     Indication: INSOMNIA
     Dosage: 0.25 MG, UNK }3 MONTHS BEFORE VISIT 1
     Route: 048
     Dates: end: 20160218
  88. AMLODIPINE BESYLATE. [Concomitant]
     Active Substance: AMLODIPINE BESYLATE
     Indication: HYPERTENSION
     Dosage: 5 MG, UNK
     Route: 048
     Dates: start: 20171015, end: 20171015
  89. BISACODYL. [Concomitant]
     Active Substance: BISACODYL
     Dosage: 20 MG, UNK
     Route: 054
     Dates: start: 20171112, end: 20171112
  90. CAPTOPRIL. [Concomitant]
     Active Substance: CAPTOPRIL
     Dosage: 25 MG, UNK
     Route: 048
     Dates: start: 20171106, end: 20171106
  91. CAPTOPRIL. [Concomitant]
     Active Substance: CAPTOPRIL
     Dosage: 12.5 MG, UNK
     Route: 048
     Dates: start: 20171129, end: 20171203
  92. CAPTOPRIL. [Concomitant]
     Active Substance: CAPTOPRIL
     Dosage: 25 MG, UNK
     Route: 048
     Dates: start: 20171209, end: 20171211
  93. ESTAZOLAM. [Concomitant]
     Active Substance: ESTAZOLAM
     Dosage: 2 MG, UNK
     Route: 048
     Dates: start: 20171123, end: 20171129
  94. GLUCOSE [Concomitant]
     Active Substance: DEXTROSE
     Dosage: 1500 ML, (5 %IN NORMAL SALINE 500 ML)
     Route: 041
     Dates: start: 20171016, end: 20171018
  95. INSULIN DETEMIR [Concomitant]
     Active Substance: INSULIN DETEMIR
     Dosage: 10 U, UNK
     Route: 058
     Dates: start: 20171021, end: 20171022
  96. NICORANDIL [Concomitant]
     Active Substance: NICORANDIL
     Dosage: 5 MG, UNK
     Route: 048
     Dates: start: 20171106, end: 20171112
  97. NICORANDIL [Concomitant]
     Active Substance: NICORANDIL
     Dosage: 5 MG, UNK
     Route: 048
     Dates: start: 20171211, end: 20171211
  98. INSULIN [Concomitant]
     Active Substance: INSULIN NOS
     Dosage: 19 U,  (10+4+5)  (100 IU)
     Route: 041
     Dates: start: 20171016, end: 20171016
  99. INSULIN [Concomitant]
     Active Substance: INSULIN NOS
     Dosage: 14 U, (6+8)
     Route: 058
     Dates: start: 20171024, end: 20171024
  100. INSULIN [Concomitant]
     Active Substance: INSULIN NOS
     Dosage: 10 U, ,(100UL/ML)
     Route: 058
     Dates: start: 20171124, end: 20171124
  101. SENNOSIDE [Concomitant]
     Active Substance: SENNOSIDES
     Dosage: 40 MG, UNK
     Route: 048
     Dates: start: 20171129, end: 20171205
  102. SODIUM CHLORIDE. [Concomitant]
     Active Substance: SODIUM CHLORIDE
     Dosage: 500 ML, UNK
     Route: 041
     Dates: start: 20171016, end: 20171022
  103. SODIUM CHLORIDE. [Concomitant]
     Active Substance: SODIUM CHLORIDE
     Dosage: 500 ML, UNK
     Route: 041
     Dates: start: 20171127, end: 20171127
  104. SODIUM CHLORIDE. [Concomitant]
     Active Substance: SODIUM CHLORIDE
     Dosage: 500 ML, UNK
     Route: 041
     Dates: start: 20171210, end: 20171211
  105. TRAZODONE [Concomitant]
     Active Substance: TRAZODONE HYDROCHLORIDE
     Dosage: 50 MG, UNK
     Route: 048
     Dates: start: 20171211, end: 20171211
  106. TASIGNA [Suspect]
     Active Substance: NILOTINIB
     Indication: CHRONIC MYELOID LEUKAEMIA
     Dosage: 600 MG, QD
     Route: 048
     Dates: start: 20160302, end: 20160308
  107. CAPTOPRIL. [Concomitant]
     Active Substance: CAPTOPRIL
     Dosage: 12.5 MG, UNK
     Route: 048
     Dates: start: 20171117, end: 20171123
  108. COMBIVENT [Concomitant]
     Active Substance: ALBUTEROL SULFATE\IPRATROPIUM BROMIDE
     Indication: PRODUCTIVE COUGH
     Dosage: 2.5 ML, (AMP)
     Route: 055
     Dates: start: 20171012, end: 20171015
  109. ESTAZOLAM. [Concomitant]
     Active Substance: ESTAZOLAM
     Dosage: 2 MG, UNK
     Route: 048
     Dates: start: 20171112, end: 20171117
  110. GLUCOSE [Concomitant]
     Active Substance: DEXTROSE
     Dosage: 40 ML, (GLUOCSE 50% 20 ML/AMP)
     Route: 041
     Dates: start: 20171016, end: 20171016
  111. GLUCOSE [Concomitant]
     Active Substance: DEXTROSE
     Dosage: 40 ML, (GLUCOSE 50%)
     Route: 041
     Dates: start: 20171210, end: 20171210
  112. ISOPHANE HUMAN INSULIN [Concomitant]
     Active Substance: INSULIN HUMAN
     Dosage: 4 U, UNK
     Route: 058
     Dates: start: 20171031, end: 20171031
  113. ISOSORBIDE-5-MONONITRATE [Concomitant]
     Active Substance: ISOSORBIDE MONONITRATE
     Dosage: 20 MG, UNK
     Route: 048
     Dates: start: 20171129, end: 20171205
  114. NICORANDIL [Concomitant]
     Active Substance: NICORANDIL
     Dosage: 5 MG, UNK
     Route: 048
     Dates: start: 20171123, end: 20171129
  115. INSULIN [Concomitant]
     Active Substance: INSULIN NOS
     Dosage: 10 U, UNK
     Route: 058
     Dates: start: 20171020, end: 20171020
  116. INSULIN [Concomitant]
     Active Substance: INSULIN NOS
     Dosage: 10 U,  (100UL/ML)
     Route: 041
     Dates: start: 20171106, end: 20171106
  117. INSULIN [Concomitant]
     Active Substance: INSULIN NOS
     Dosage: 8 U, (100UL/ML)
     Route: 058
     Dates: start: 20171120, end: 20171122
  118. SENNOSIDE [Concomitant]
     Active Substance: SENNOSIDES
     Dosage: 20 MG, UNK
     Route: 048
     Dates: start: 20171014, end: 20171014
  119. SODIUM CHLORIDE. [Concomitant]
     Active Substance: SODIUM CHLORIDE
     Dosage: 500 ML, UNK
     Route: 041
     Dates: start: 20171129, end: 20171129
  120. TRAZODONE [Concomitant]
     Active Substance: TRAZODONE HYDROCHLORIDE
     Indication: INSOMNIA
     Dosage: 50 MG, UNK
     Route: 048
     Dates: start: 20171114, end: 20171117
  121. TRAZODONE [Concomitant]
     Active Substance: TRAZODONE HYDROCHLORIDE
     Dosage: 50 MG, UNK
     Route: 048
     Dates: start: 20171123, end: 20171129
  122. TRAZODONE [Concomitant]
     Active Substance: TRAZODONE HYDROCHLORIDE
     Dosage: 50 MG, UNK
     Route: 048
     Dates: start: 20171129, end: 20171205
  123. ISOSORBIDE DINITRATE. [Concomitant]
     Active Substance: ISOSORBIDE DINITRATE
     Indication: MYOCARDIAL ISCHAEMIA
     Dosage: 10 MG, UNK }3 MONTHS BEFORE VISIT 1
     Route: 048
  124. AMLODIPINE BESYLATE. [Concomitant]
     Active Substance: AMLODIPINE BESYLATE
     Dosage: 5 MG, UNK
     Route: 048
     Dates: start: 20171123, end: 20171129
  125. BISACODYL. [Concomitant]
     Active Substance: BISACODYL
     Indication: PROPHYLAXIS
     Dosage: 20 MG, UNK
     Route: 054
     Dates: start: 20171019, end: 20171019
  126. BISACODYL. [Concomitant]
     Active Substance: BISACODYL
     Dosage: 20 MG, UNK
     Route: 054
     Dates: start: 20171028, end: 20171028
  127. CAPTOPRIL. [Concomitant]
     Active Substance: CAPTOPRIL
     Dosage: 12.5 MG, UNK
     Route: 048
     Dates: start: 20171113, end: 20171117
  128. CAPTOPRIL. [Concomitant]
     Active Substance: CAPTOPRIL
     Dosage: 12.5 MG, UNK
     Route: 048
     Dates: start: 20171123, end: 20171129
  129. DILTIAZEM. [Concomitant]
     Active Substance: DILTIAZEM
     Indication: HYPERTENSION
     Dosage: 30 MG, UNK
     Route: 048
     Dates: start: 20171012, end: 20171012
  130. ESTAZOLAM. [Concomitant]
     Active Substance: ESTAZOLAM
     Dosage: 2 MG, UNK
     Route: 048
     Dates: start: 20171129, end: 20171205
  131. GLUCOSE [Concomitant]
     Active Substance: DEXTROSE
     Dosage: 40 ML, (GLUCOSE 50%)
     Route: 041
     Dates: start: 20171111, end: 20171111
  132. INSULIN DETEMIR [Concomitant]
     Active Substance: INSULIN DETEMIR
     Dosage: 14 U, UNK
     Route: 058
     Dates: start: 20171024, end: 20171024
  133. LIDOCAINE. [Concomitant]
     Active Substance: LIDOCAINE
     Indication: PROPHYLAXIS
     Dosage: 20 ML, UNK
     Route: 065
     Dates: start: 20171020, end: 20171020
  134. NICORANDIL [Concomitant]
     Active Substance: NICORANDIL
     Dosage: 5 MG, UNK
     Route: 048
     Dates: start: 20171112, end: 20171117
  135. INSULIN [Concomitant]
     Active Substance: INSULIN NOS
     Dosage: 17 U, (10 +7)
     Route: 058
     Dates: start: 20171022, end: 20171022
  136. INSULIN [Concomitant]
     Active Substance: INSULIN NOS
     Dosage: 12 U, (100UL/ML)
     Route: 058
     Dates: start: 20171025, end: 20171026
  137. INSULIN [Concomitant]
     Active Substance: INSULIN NOS
     Dosage: 4 U, (100UL/ML)
     Route: 058
     Dates: start: 20171025, end: 20171026
  138. INSULIN [Concomitant]
     Active Substance: INSULIN NOS
     Dosage: 4 U, (100UL/ML)
     Route: 058
     Dates: start: 20171111, end: 20171120
  139. INSULIN [Concomitant]
     Active Substance: INSULIN NOS
     Dosage: 8 U, (100UL/ML)
     Route: 058
     Dates: start: 20171122, end: 20171123
  140. SODIUM CHLORIDE. [Concomitant]
     Active Substance: SODIUM CHLORIDE
     Dosage: 500 ML, UNK
     Route: 041
     Dates: start: 20171022, end: 20171029
  141. SODIUM CHLORIDE. [Concomitant]
     Active Substance: SODIUM CHLORIDE
     Dosage: 500 ML, UNK
     Route: 041
     Dates: start: 20171128, end: 20171128
  142. TRAZODONE [Concomitant]
     Active Substance: TRAZODONE HYDROCHLORIDE
     Dosage: 50 MG, UNK
     Route: 048
     Dates: start: 20171205, end: 20171211
  143. VALSARTAN. [Concomitant]
     Active Substance: VALSARTAN
     Dosage: 80 MG, UNK
     Route: 048
     Dates: start: 20171129, end: 20171129
  144. CAPTOPRIL. [Concomitant]
     Active Substance: CAPTOPRIL
     Dosage: 25 MG, UNK
     Route: 048
     Dates: start: 20171111, end: 20171111
  145. DILTIAZEM. [Concomitant]
     Active Substance: DILTIAZEM
     Dosage: 30 MG, UNK
     Route: 048
     Dates: start: 20171023, end: 20171023
  146. LOSARTAN. [Concomitant]
     Active Substance: LOSARTAN
     Indication: HYPERTENSION
     Dosage: 50 MG, UNK
     Route: 048
     Dates: start: 20171012, end: 20171017
  147. MAGNESIUM OXIDE. [Concomitant]
     Active Substance: MAGNESIUM OXIDE
     Indication: PROPHYLAXIS
     Dosage: 250 MG, UNK
     Route: 048
     Dates: start: 20171012, end: 20171016
  148. METFORMIN [Concomitant]
     Active Substance: METFORMIN HYDROCHLORIDE
     Indication: TYPE 2 DIABETES MELLITUS
     Dosage: 500 MG, UNK
     Route: 048
     Dates: start: 20171130, end: 20171206
  149. NICARDIPINE [Concomitant]
     Active Substance: NICARDIPINE
     Dosage: 0.1 MG, (10 MG/ 10 ML/ AMP)
     Route: 041
     Dates: start: 20171012, end: 20171012
  150. INSULIN [Concomitant]
     Active Substance: INSULIN NOS
     Dosage: 9 U, (3+6) (100 IU)
     Route: 058
     Dates: start: 20171013, end: 20171013
  151. INSULIN [Concomitant]
     Active Substance: INSULIN NOS
     Dosage: 3 U, (100 IU)
     Route: 058
     Dates: start: 20171016, end: 20171016
  152. INSULIN [Concomitant]
     Active Substance: INSULIN NOS
     Dosage: 16 U, UNK
     Route: 058
     Dates: start: 20171021, end: 20171021
  153. INSULIN [Concomitant]
     Active Substance: INSULIN NOS
     Dosage: 3 U, UNK
     Route: 058
     Dates: start: 20171023, end: 20171023
  154. INSULIN [Concomitant]
     Active Substance: INSULIN NOS
     Dosage: 8 U, UNK
     Route: 058
     Dates: start: 20171025, end: 20171026
  155. INSULIN [Concomitant]
     Active Substance: INSULIN NOS
     Dosage: 6 U, (100UL/ML)
     Route: 058
     Dates: start: 20171105, end: 20171111
  156. INSULIN [Concomitant]
     Active Substance: INSULIN NOS
     Dosage: 6 U,(100UL/ML)
     Route: 058
     Dates: start: 20171123, end: 20171130
  157. INSULIN [Concomitant]
     Active Substance: INSULIN NOS
     Dosage: 10 U, (100UL/ML) (6+4)
     Route: 041
     Dates: start: 20171210, end: 20171210
  158. INSULIN [Concomitant]
     Active Substance: INSULIN NOS
     Dosage: 8 U,(100UL/ML)
     Route: 058
     Dates: start: 20171211, end: 20171211
  159. REPAGLINIDE. [Concomitant]
     Active Substance: REPAGLINIDE
     Indication: TYPE 2 DIABETES MELLITUS
     Dosage: 0.5 MG, UNK
     Route: 048
     Dates: start: 20171201, end: 20171211
  160. SENNOSIDE [Concomitant]
     Active Substance: SENNOSIDES
     Indication: PROPHYLAXIS
     Dosage: 40 MG, UNK
     Route: 048
     Dates: start: 20171012, end: 20171012
  161. SENNOSIDE [Concomitant]
     Active Substance: SENNOSIDES
     Dosage: 40 MG, UNK
     Route: 048
     Dates: start: 20171027, end: 20171102
  162. SENNOSIDE [Concomitant]
     Active Substance: SENNOSIDES
     Dosage: 40 MG, UNK
     Route: 048
     Dates: start: 20171117, end: 20171123
  163. SODIUM CHLORIDE. [Concomitant]
     Active Substance: SODIUM CHLORIDE
     Dosage: 500 ML, UNK
     Route: 041
     Dates: start: 20171104, end: 20171110
  164. SODIUM CHLORIDE. [Concomitant]
     Active Substance: SODIUM CHLORIDE
     Dosage: 500 ML, UNK
     Route: 041
     Dates: start: 20171110, end: 20171113
  165. SODIUM CHLORIDE. [Concomitant]
     Active Substance: SODIUM CHLORIDE
     Dosage: 500 ML, UNK
     Route: 041
     Dates: start: 20171113, end: 20171117

REACTIONS (16)
  - Dyspnoea [Unknown]
  - Bronchitis [Recovered/Resolved]
  - Chronic obstructive pulmonary disease [Not Recovered/Not Resolved]
  - Pneumonia aspiration [Recovered/Resolved]
  - Chest pain [Recovered/Resolved]
  - Pleural effusion [Not Recovered/Not Resolved]
  - Dyspnoea [Recovered/Resolved]
  - Orthopnoea [Not Recovered/Not Resolved]
  - Chest discomfort [Not Recovered/Not Resolved]
  - Cardiac failure [Recovered/Resolved]
  - Inappropriate schedule of product administration [Unknown]
  - Anaemia [Recovered/Resolved]
  - Pulmonary oedema [Recovered/Resolved]
  - Cough [Not Recovered/Not Resolved]
  - Emphysema [Recovering/Resolving]
  - Arterial fibrosis [Not Recovered/Not Resolved]

NARRATIVE: CASE EVENT DATE: 20160302
